FAERS Safety Report 16343588 (Version 6)
Quarter: 2021Q1

REPORT INFORMATION
  Report Type: Spontaneous
  Country: US (occurrence: US)
  Receive Date: 20190522
  Receipt Date: 20210115
  Transmission Date: 20210419
  Serious: No
  Sender: FDA-Public Use
  Company Number: US-PFIZER INC-2019015675

PATIENT
  Age: 60 Year
  Sex: Female
  Weight: 76 kg

DRUGS (6)
  1. LYRICA [Suspect]
     Active Substance: PREGABALIN
     Indication: BURNING SENSATION
  2. LYRICA [Suspect]
     Active Substance: PREGABALIN
     Indication: FIBROMYALGIA
  3. LYRICA [Suspect]
     Active Substance: PREGABALIN
     Indication: PAIN
     Dosage: 150 MG, 3X/DAY
     Route: 048
     Dates: start: 201811
  4. XTAMPZA ER [Concomitant]
     Active Substance: OXYCODONE
     Dosage: UNK
     Dates: start: 202009
  5. MORPHINE [Concomitant]
     Active Substance: MORPHINE
     Dosage: UNK
  6. OXCARBAZEPINE. [Concomitant]
     Active Substance: OXCARBAZEPINE
     Dosage: 450 MG, DAILY  (ONE 150MG, TABLET BY MOUTH, IN THE MORNING AND 2 TABLETS AT NIGHT)
     Route: 048

REACTIONS (5)
  - Drug ineffective [Unknown]
  - Tremor [Unknown]
  - Peripheral swelling [Unknown]
  - Sensitivity to weather change [Not Recovered/Not Resolved]
  - Illness [Unknown]
